FAERS Safety Report 15376385 (Version 3)
Quarter: 2019Q2

REPORT INFORMATION
  Report Type: Spontaneous
  Country: FR (occurrence: FR)
  Receive Date: 20180912
  Receipt Date: 20190412
  Transmission Date: 20190711
  Serious: Yes (Congenital Anomaly, Other)
  Sender: FDA-Public Use
  Company Number: PHHY2018FR091003

PATIENT

DRUGS (4)
  1. AMOROLFINE [Suspect]
     Active Substance: AMOROLFINE
     Indication: FOETAL EXPOSURE DURING PREGNANCY
     Dosage: UNK
     Route: 064
  2. MYCOPHENOLATE MOFETIL. [Suspect]
     Active Substance: MYCOPHENOLATE MOFETIL
     Indication: FOETAL EXPOSURE DURING PREGNANCY
     Dosage: UNK
     Route: 064
  3. ALENDRONATE [Suspect]
     Active Substance: ALENDRONATE SODIUM
     Indication: FOETAL EXPOSURE DURING PREGNANCY
     Dosage: UNK
     Route: 064
  4. AZATHIOPRINE. [Suspect]
     Active Substance: AZATHIOPRINE
     Indication: FOETAL EXPOSURE DURING PREGNANCY
     Dosage: UNK
     Route: 064

REACTIONS (14)
  - Congenital aortic anomaly [Not Recovered/Not Resolved]
  - Craniofacial deformity [Not Recovered/Not Resolved]
  - Congenital cardiovascular anomaly [Not Recovered/Not Resolved]
  - Microphthalmos [Not Recovered/Not Resolved]
  - Pulmonary malformation [Not Recovered/Not Resolved]
  - Foetal exposure during pregnancy [Unknown]
  - Congenital hand malformation [Not Recovered/Not Resolved]
  - Multiple congenital abnormalities [Not Recovered/Not Resolved]
  - Epiphyses premature fusion [Not Recovered/Not Resolved]
  - Cystic eyeball, congenital [Not Recovered/Not Resolved]
  - Oesophageal atresia [Not Recovered/Not Resolved]
  - Vascular malformation [Not Recovered/Not Resolved]
  - Coloboma [Not Recovered/Not Resolved]
  - Teratogenicity [Not Recovered/Not Resolved]
